FAERS Safety Report 6395575-X (Version None)
Quarter: 2009Q4

REPORT INFORMATION
  Report Type: 
  Country: None (occurrence: None)
  Receive Date: 20091009
  Receipt Date: 20090928
  Transmission Date: 20100525
  Serious: Yes (Death, Other)
  Sender: FDA-Public Use
  Company Number: TW-BRISTOL-MYERS SQUIBB COMPANY-14795504

PATIENT
  Age: 48 Year
  Sex: Male

DRUGS (11)
  1. CISPLATIN [Suspect]
     Indication: OESOPHAGEAL SQUAMOUS CELL CARCINOMA
     Dosage: 75 MG/M2 DAY 1 2 CYCLES 1 MONTH APART
  2. ETOPOSIDE [Suspect]
     Indication: ACUTE MYELOID LEUKAEMIA
  3. ETOPOSIDE [Suspect]
     Indication: MYELOFIBROSIS
  4. FLUOROURACIL [Suspect]
     Indication: OESOPHAGEAL SQUAMOUS CELL CARCINOMA
     Dosage: 1000 MG/M2/DAY FOR 4 DAYS 2 CYCLES 1 MONTH APART
  5. CYTARABINE [Suspect]
     Indication: ACUTE MYELOID LEUKAEMIA
     Dosage: 100 MG/M2/DAY FOR 7 DAYS AS INDUCTION THERAPY.
  6. CYTARABINE [Suspect]
     Indication: MYELOFIBROSIS
     Dosage: 100 MG/M2/DAY FOR 7 DAYS AS INDUCTION THERAPY.
  7. DAUNOMYCIN [Suspect]
     Indication: ACUTE MYELOID LEUKAEMIA
     Dosage: 50 MG/M2 FOR 3 DAYS AS INDUCTION THERAPY
  8. DAUNOMYCIN [Suspect]
     Indication: MYELOFIBROSIS
     Dosage: 50 MG/M2 FOR 3 DAYS AS INDUCTION THERAPY
  9. IDARUBICIN HCL [Suspect]
     Indication: ACUTE MYELOID LEUKAEMIA
  10. IDARUBICIN HCL [Suspect]
     Indication: MYELOFIBROSIS
  11. RADIOTHERAPY [Suspect]
     Indication: OESOPHAGEAL SQUAMOUS CELL CARCINOMA
     Dosage: 1 DOSAGE FORM = 3000 CGY (IN 15 FRACTIONS)

REACTIONS (3)
  - ACUTE MYELOID LEUKAEMIA [None]
  - MYELOFIBROSIS [None]
  - PNEUMONIA [None]
